FAERS Safety Report 8590865-4 (Version None)
Quarter: 2012Q3

REPORT INFORMATION
  Report Type: 
  Country: None (occurrence: None)
  Receive Date: 20120813
  Receipt Date: 20120807
  Transmission Date: 20120928
  Serious: Yes (Hospitalization)
  Sender: FDA-Public Use
  Company Number: PHHY2012CA068206

PATIENT
  Sex: Male

DRUGS (9)
  1. VITAMIN B-12 [Concomitant]
  2. METOPROLOL [Concomitant]
  3. SENOKOT [Concomitant]
  4. QUETIAPINE [Concomitant]
  5. AMLODIPINE [Concomitant]
  6. RABEPRAZOLE SODIUM [Concomitant]
  7. DOXAZOSIN MESYLATE [Concomitant]
  8. FUROSEMIDE [Concomitant]
  9. RISPERIDONE [Suspect]
     Indication: DEMENTIA
     Route: 048

REACTIONS (3)
  - INTESTINAL OBSTRUCTION [None]
  - ANGINA PECTORIS [None]
  - CHEST DISCOMFORT [None]
